FAERS Safety Report 22759196 (Version 7)
Quarter: 2024Q1

REPORT INFORMATION
  Report Type: Spontaneous
  Country: DE (occurrence: DE)
  Receive Date: 20230728
  Receipt Date: 20240325
  Transmission Date: 20240410
  Serious: Yes (Death, Hospitalization, Other)
  Sender: FDA-Public Use
  Company Number: DE-STADA-281994

PATIENT
  Age: 65 Year
  Sex: Female

DRUGS (29)
  1. TACROLIMUS [Suspect]
     Active Substance: TACROLIMUS
     Indication: Immunosuppressant drug therapy
     Dosage: RECEIVED AFTER SECOND LIVER TRANSPLANT
     Route: 065
  2. TACROLIMUS [Suspect]
     Active Substance: TACROLIMUS
     Indication: Liver transplant
  3. TACROLIMUS [Suspect]
     Active Substance: TACROLIMUS
     Indication: Prophylaxis against graft versus host disease
  4. BASILIXIMAB [Suspect]
     Active Substance: BASILIXIMAB
     Indication: Immunosuppressant drug therapy
     Dosage: RECEIVED AFTER SECOND LIVER TRANSPLANT
     Route: 065
  5. BASILIXIMAB [Suspect]
     Active Substance: BASILIXIMAB
     Indication: Liver transplant
     Dosage: 20 MILLIGRAM, POD 1 AND 4
     Route: 065
  6. BASILIXIMAB [Suspect]
     Active Substance: BASILIXIMAB
     Indication: Prophylaxis against graft versus host disease
  7. PREDNISOLONE [Suspect]
     Active Substance: PREDNISOLONE
     Indication: Immunosuppressant drug therapy
     Dosage: RECEIVED AFTER SECOND LIVER TRANSPLANT
     Route: 065
  8. PREDNISOLONE [Suspect]
     Active Substance: PREDNISOLONE
     Indication: Liver transplant
  9. PREDNISOLONE [Suspect]
     Active Substance: PREDNISOLONE
     Indication: Prophylaxis against graft versus host disease
  10. PREDNISOLONE [Suspect]
     Active Substance: PREDNISOLONE
     Indication: Liver transplant
  11. HYDROCORTISONE [Suspect]
     Active Substance: HYDROCORTISONE
     Indication: Immunosuppressant drug therapy
     Dosage: UNK
     Route: 065
  12. HYDROCORTISONE [Suspect]
     Active Substance: HYDROCORTISONE
     Indication: Immunosuppression
  13. AMPHOTERICIN B [Suspect]
     Active Substance: AMPHOTERICIN B
     Indication: Antifungal prophylaxis
     Dosage: UNK
     Route: 065
  14. AMPHOTERICIN B [Suspect]
     Active Substance: AMPHOTERICIN B
     Indication: Anti-infective therapy
  15. ANIDULAFUNGIN [Suspect]
     Active Substance: ANIDULAFUNGIN
     Indication: Antifungal prophylaxis
     Dosage: UNK
     Route: 065
  16. ANIDULAFUNGIN [Suspect]
     Active Substance: ANIDULAFUNGIN
     Indication: Enterococcal infection
  17. ANIDULAFUNGIN [Suspect]
     Active Substance: ANIDULAFUNGIN
     Indication: Liver transplant
  18. VORICONAZOLE [Suspect]
     Active Substance: VORICONAZOLE
     Indication: Antifungal prophylaxis
     Dosage: UNK
     Route: 065
  19. VORICONAZOLE [Suspect]
     Active Substance: VORICONAZOLE
     Indication: Anti-infective therapy
  20. DAPTOMYCIN [Suspect]
     Active Substance: DAPTOMYCIN
     Indication: Enterococcal infection
     Dosage: UNK
     Route: 065
  21. DAPTOMYCIN [Suspect]
     Active Substance: DAPTOMYCIN
     Indication: Liver transplant
  22. MEROPENEM [Suspect]
     Active Substance: MEROPENEM
     Indication: Enterococcal infection
     Dosage: UNK
     Route: 065
  23. MEROPENEM [Suspect]
     Active Substance: MEROPENEM
     Indication: Antifungal prophylaxis
  24. GANCICLOVIR SODIUM [Suspect]
     Active Substance: GANCICLOVIR SODIUM
     Indication: Enterococcal infection
     Dosage: UNK
     Route: 065
  25. GANCICLOVIR SODIUM [Suspect]
     Active Substance: GANCICLOVIR SODIUM
     Indication: Antifungal prophylaxis
  26. VALGANCICLOVIR HYDROCHLORIDE [Suspect]
     Active Substance: VALGANCICLOVIR HYDROCHLORIDE
     Indication: Cytomegalovirus viraemia
     Dosage: UNK
     Route: 065
  27. VALGANCICLOVIR HYDROCHLORIDE [Suspect]
     Active Substance: VALGANCICLOVIR HYDROCHLORIDE
     Indication: Antifungal prophylaxis
     Dosage: 20 MG (POD 1 AND 4)
     Route: 065
  28. VALGANCICLOVIR HYDROCHLORIDE [Suspect]
     Active Substance: VALGANCICLOVIR HYDROCHLORIDE
     Indication: Prophylaxis against graft versus host disease
  29. VALGANCICLOVIR HYDROCHLORIDE [Suspect]
     Active Substance: VALGANCICLOVIR HYDROCHLORIDE
     Indication: Enterococcal infection

REACTIONS (9)
  - Brain oedema [Fatal]
  - Blood pressure fluctuation [Fatal]
  - Cerebral disorder [Fatal]
  - Drug ineffective [Fatal]
  - Intracranial infection [Fatal]
  - Brain abscess [Fatal]
  - Fusarium infection [Fatal]
  - Enterococcal infection [Unknown]
  - Off label use [Unknown]
